FAERS Safety Report 13609223 (Version 2)
Quarter: 2017Q2

REPORT INFORMATION
  Report Type: Report from Study
  Country: US (occurrence: US)
  Receive Date: 20170602
  Receipt Date: 20170630
  Transmission Date: 20170830
  Serious: Yes (Hospitalization, Other)
  Sender: FDA-Public Use
  Company Number: US-GILEAD-2017-0275554

PATIENT
  Age: 65 Year
  Sex: Female
  Weight: 71.2 kg

DRUGS (3)
  1. RANOLAZINE. [Suspect]
     Active Substance: RANOLAZINE
     Indication: VENTRICULAR EXTRASYSTOLES
     Dosage: 500 MG, UNK
     Route: 048
  2. METOPROLOL. [Concomitant]
     Active Substance: METOPROLOL
     Dosage: UNK
     Route: 065
     Dates: end: 201705
  3. RANOLAZINE. [Suspect]
     Active Substance: RANOLAZINE
     Indication: ANGINA PECTORIS
     Dosage: 1000 MG, UNK
     Route: 048

REACTIONS (2)
  - Hypotension [Unknown]
  - Syncope [Recovered/Resolved]

NARRATIVE: CASE EVENT DATE: 20170515
